FAERS Safety Report 15906325 (Version 2)
Quarter: 2019Q1

REPORT INFORMATION
  Report Type: Report from Study
  Country: ZA (occurrence: ZA)
  Receive Date: 20190204
  Receipt Date: 20190315
  Transmission Date: 20190417
  Serious: Yes (Hospitalization)
  Sender: FDA-Public Use
  Company Number: ZA-SAKK-2018SA263171AA

PATIENT
  Age: 81 Year
  Sex: Female

DRUGS (9)
  1. OPTISULIN (INSULIN GLARGINE) [Suspect]
     Active Substance: INSULIN GLARGINE
     Dosage: 10 U, HS
     Route: 065
     Dates: start: 20180913
  2. VILDAGLIPTIN [Concomitant]
     Active Substance: VILDAGLIPTIN
     Dosage: 50 MG, BID, AT AS (AFTER SUPPER) AND AB (AFTER BREAKFAST)
     Route: 065
     Dates: start: 20180911
  3. DIAGLUCIDE [Concomitant]
     Active Substance: GLICLAZIDE
     Dosage: 120 MG, QD AT BB (BEFORE BREAKFAST)
     Route: 065
     Dates: start: 20180909
  4. PURESIS [Concomitant]
     Active Substance: FUROSEMIDE
     Dosage: 20 MG, QD AT AB (AFTER BREAKFAST)
     Route: 065
     Dates: start: 19980912
  5. ADCO-SIMVASTATIN [Concomitant]
     Active Substance: SIMVASTATIN
     Dosage: 20 MG, HS AT BT (BED TIME)
     Route: 065
     Dates: start: 20180909
  6. OPTISULIN (INSULIN GLARGINE) [Suspect]
     Active Substance: INSULIN GLARGINE
     Indication: TYPE 2 DIABETES MELLITUS
     Dosage: 10 U, BID, 10 UNITS IN BREAKFAST AND 10 UNITS AT NIGHT TIME
     Route: 065
     Dates: start: 20180908, end: 20181001
  7. ECOTRIN [Concomitant]
     Active Substance: ASPIRIN
     Dosage: 81 MG, QD AFTER BREAKFAST
     Route: 065
     Dates: start: 20180909
  8. NO STUDY DRUG GIVEN [Suspect]
     Active Substance: UNSPECIFIED INGREDIENT
     Dosage: UNK
     Route: 065
  9. CARDURA XL [Concomitant]
     Active Substance: DOXAZOSIN MESYLATE
     Dosage: 4 MG, QD AT AB (AFTER BREAKFAST)
     Route: 065
     Dates: start: 19980907

REACTIONS (7)
  - Overdose [Unknown]
  - Pain in extremity [Recovered/Resolved with Sequelae]
  - Product dose omission [Unknown]
  - Pain [Not Recovered/Not Resolved]
  - Intentional product misuse [Unknown]
  - Feeling hot [Recovered/Resolved with Sequelae]
  - Off label use [Unknown]

NARRATIVE: CASE EVENT DATE: 20181001
